FAERS Safety Report 6760601-2 (Version None)
Quarter: 2010Q2

REPORT INFORMATION
  Report Type: 
  Country: None (occurrence: None)
  Receive Date: 20100608
  Receipt Date: 20100527
  Transmission Date: 20101027
  Serious: Yes (Other)
  Sender: FDA-Public Use
  Company Number: US-PFIZER INC-2010067025

PATIENT
  Sex: Female

DRUGS (1)
  1. SUTENT [Suspect]
     Indication: GASTRIC CANCER
     Dosage: 50 MG, 1X/DAY

REACTIONS (2)
  - BLOOD PRESSURE INCREASED [None]
  - CHEST PAIN [None]
